FAERS Safety Report 8502507-4 (Version None)
Quarter: 2012Q3

REPORT INFORMATION
  Report Type: 
  Country: None (occurrence: None)
  Receive Date: 20120711
  Receipt Date: 20120629
  Transmission Date: 20120928
  Serious: Yes (Other)
  Sender: FDA-Public Use
  Company Number: JP-SANOFI-AVENTIS-2012SA026846

PATIENT
  Age: 58 Year
  Sex: Female
  Weight: 25.5 kg

DRUGS (8)
  1. SLOW-K [Concomitant]
     Route: 048
     Dates: start: 20120410
  2. TEGRETOL [Concomitant]
     Indication: EPILEPSY
     Route: 048
     Dates: start: 19940101
  3. RIZE [Concomitant]
     Route: 048
     Dates: start: 19940101
  4. ALLOPURINOL [Concomitant]
     Route: 048
  5. FERROUS SULFATE TAB [Concomitant]
     Route: 048
     Dates: start: 20120411
  6. ARTIFICIAL TEARS [Concomitant]
     Indication: DRY EYE
     Dosage: 5 TIMES PER DAY
     Route: 047
  7. LASIX [Suspect]
     Route: 048
     Dates: end: 20120401
  8. CEFAZOLIN SODIUM [Concomitant]
     Route: 048
     Dates: start: 20120411

REACTIONS (4)
  - METABOLIC ALKALOSIS [None]
  - HYPOKALAEMIA [None]
  - PSEUDO-BARTTER SYNDROME [None]
  - RENAL CYST [None]
